FAERS Safety Report 5397243-X (Version None)
Quarter: 2007Q3

REPORT INFORMATION
  Report Type: 
  Country: None (occurrence: None)
  Receive Date: 20070725
  Receipt Date: 20070713
  Transmission Date: 20080115
  Serious: Yes (Hospitalization, Other)
  Sender: FDA-Public Use
  Company Number: JP-PFIZER INC-2007058334

PATIENT

DRUGS (1)
  1. NORVASC [Suspect]
     Dates: start: 20070704, end: 20070704

REACTIONS (1)
  - ACCIDENTAL EXPOSURE [None]
